FAERS Safety Report 21621400 (Version 1)
Quarter: 2022Q4

REPORT INFORMATION
  Report Type: Spontaneous
  Country: US (occurrence: None)
  Receive Date: 20221118
  Receipt Date: 20221118
  Transmission Date: 20230112
  Serious: No
  Sender: FDA-Public Use
  Company Number: None

PATIENT
  Sex: Female

DRUGS (1)
  1. ENBREL [Suspect]
     Active Substance: ETANERCEPT
     Indication: Osteoarthritis
     Dosage: OTHER FREQUENCY : Q 7DAYS;?
     Route: 058
     Dates: start: 202202

REACTIONS (2)
  - Therapy non-responder [None]
  - Therapy interrupted [None]
